FAERS Safety Report 10674755 (Version 2)
Quarter: 2015Q1

REPORT INFORMATION
  Report Type: Spontaneous
  Country: US (occurrence: US)
  Receive Date: 20141224
  Receipt Date: 20150120
  Transmission Date: 20150720
  Serious: Yes (Hospitalization, Other)
  Sender: FDA-Public Use
  Company Number: US-JNJFOC-20141212086

PATIENT
  Age: 40 Year

DRUGS (3)
  1. DOXIL [Suspect]
     Active Substance: DOXORUBICIN HYDROCHLORIDE
     Indication: PLASMA CELL MYELOMA
     Dosage: ON DAY 4 EACH CYCLE
     Route: 042
     Dates: start: 20111103, end: 20120919
  2. VELCADE [Suspect]
     Active Substance: BORTEZOMIB
     Indication: PLASMA CELL MYELOMA
     Dosage: ON DAY 1, 4, 8 AND 11 EVERY 3 WEEKS
     Route: 042
     Dates: start: 20111031, end: 20120919
  3. DECADRON [Suspect]
     Active Substance: DEXAMETHASONE
     Indication: PLASMA CELL MYELOMA
     Dosage: ON DAY 4 OF EACH CYCLE
     Route: 042
     Dates: start: 20111103, end: 20130716

REACTIONS (3)
  - Anaemia [Unknown]
  - Upper gastrointestinal haemorrhage [Unknown]
  - Abdominal pain [Unknown]

NARRATIVE: CASE EVENT DATE: 20120807
